FAERS Safety Report 5833108-4 (Version None)
Quarter: 2008Q3

REPORT INFORMATION
  Report Type: 
  Country: None (occurrence: None)
  Receive Date: 20080805
  Receipt Date: 20080722
  Transmission Date: 20090109
  Serious: Yes (Other)
  Sender: FDA-Public Use
  Company Number: US-ASTRAZENECA-2008UW14815

PATIENT
  Age: 50 Year
  Sex: Male
  Weight: 79.4 kg

DRUGS (6)
  1. SEROQUEL [Suspect]
     Route: 048
  2. PRISTIQ [Concomitant]
  3. ZANTAC [Concomitant]
  4. DIMOXYLINE [Concomitant]
  5. ASPIRIN [Concomitant]
  6. SIMVASTATIN [Concomitant]

REACTIONS (5)
  - BACK INJURY [None]
  - FACE INJURY [None]
  - JOINT INJURY [None]
  - LOSS OF CONSCIOUSNESS [None]
  - SYNCOPE [None]
